FAERS Safety Report 7708753-1 (Version None)
Quarter: 2011Q3

REPORT INFORMATION
  Report Type: 
  Country: None (occurrence: None)
  Receive Date: 20110825
  Receipt Date: 20110825
  Transmission Date: 20111222
  Serious: Yes (Other)
  Sender: FDA-Public Use
  Company Number: None

PATIENT
  Age: 45 Year
  Sex: Female
  Weight: 68.038 kg

DRUGS (3)
  1. FENTANYL-100 [Suspect]
     Indication: PARAESTHESIA
     Dates: start: 20050315, end: 20091015
  2. FENTANYL-100 [Suspect]
     Indication: PAIN
     Dates: start: 20050315, end: 20091015
  3. FENTANYL-100 [Suspect]
     Indication: SPINAL DISORDER
     Dates: start: 20050315, end: 20091015

REACTIONS (4)
  - PRODUCT PACKAGING QUANTITY ISSUE [None]
  - PRODUCT SUBSTITUTION ISSUE [None]
  - PRODUCT ADHESION ISSUE [None]
  - PRODUCT PHYSICAL ISSUE [None]
